FAERS Safety Report 8352061-5 (Version None)
Quarter: 2012Q2

REPORT INFORMATION
  Report Type: 
  Country: None (occurrence: None)
  Receive Date: 20120511
  Receipt Date: 20120430
  Transmission Date: 20120825
  Serious: Yes (Hospitalization)
  Sender: FDA-Public Use
  Company Number: US-JNJFOC-20120214491

PATIENT
  Sex: Female
  Weight: 63.5 kg

DRUGS (2)
  1. REMICADE [Suspect]
     Indication: COLITIS ULCERATIVE
     Route: 042
     Dates: start: 20100101
  2. REMICADE [Suspect]
     Indication: CROHN'S DISEASE
     Route: 042
     Dates: start: 20100101

REACTIONS (5)
  - WEIGHT INCREASED [None]
  - MUSCLE DISORDER [None]
  - DYSPNOEA [None]
  - JOINT SWELLING [None]
  - PULMONARY THROMBOSIS [None]
